FAERS Safety Report 19583411 (Version 1)
Quarter: 2021Q3

REPORT INFORMATION
  Report Type: Spontaneous
  Country: US (occurrence: US)
  Receive Date: 20210720
  Receipt Date: 20210720
  Transmission Date: 20211014
  Serious: No
  Sender: FDA-Public Use
  Company Number: None

PATIENT
  Age: 81 Year
  Sex: Male

DRUGS (1)
  1. TAFAMIDIS [Suspect]
     Active Substance: TAFAMIDIS MEGLUMINE
     Indication: CARDIAC FAILURE CONGESTIVE
     Route: 048
     Dates: start: 20190813

REACTIONS (3)
  - Musculoskeletal stiffness [None]
  - Myalgia [None]
  - Dysuria [None]

NARRATIVE: CASE EVENT DATE: 20191015
